FAERS Safety Report 11488572 (Version 1)
Quarter: 2015Q3

REPORT INFORMATION
  Report Type: Spontaneous
  Country: US (occurrence: US)
  Receive Date: 20150910
  Receipt Date: 20150910
  Transmission Date: 20151125
  Serious: No
  Sender: FDA-Public Use
  Company Number: US-ROCHE-1450605

PATIENT
  Sex: Male

DRUGS (6)
  1. NOVOLIN N [Concomitant]
     Active Substance: INSULIN HUMAN
     Dosage: 8 U AM, 6 U NOON, 4 U PM
     Route: 065
  2. NOVOLIN R [Concomitant]
     Active Substance: INSULIN HUMAN
     Indication: TYPE 1 DIABETES MELLITUS
     Dosage: 8 UNITS IN AM, 6 UNITS AT NOON, AND 4 UNITS IN PM
     Route: 065
  3. RIBAVIRIN. [Suspect]
     Active Substance: RIBAVIRIN
     Indication: CHRONIC HEPATITIS C
     Dosage: ZYDUS PHARMACEUTICALS BRAND,   DIVIDED DOSES 400/600)
     Route: 048
     Dates: start: 20140723
  4. PEGASYS [Suspect]
     Active Substance: PEGINTERFERON ALFA-2A
     Indication: CHRONIC HEPATITIS C
     Route: 058
     Dates: start: 20140723
  5. SOVALDI [Suspect]
     Active Substance: SOFOSBUVIR
     Indication: CHRONIC HEPATITIS C
     Route: 065
     Dates: start: 20140723
  6. NOVOLIN N [Concomitant]
     Active Substance: INSULIN HUMAN
     Indication: TYPE 1 DIABETES MELLITUS
     Dosage: 14 UNITS AM, 10 UNITS PM
     Route: 065

REACTIONS (4)
  - Blood glucose increased [Unknown]
  - Dizziness [Unknown]
  - Nausea [Unknown]
  - Dyspnoea exertional [Unknown]
